FAERS Safety Report 6906782-9 (Version None)
Quarter: 2010Q3

REPORT INFORMATION
  Report Type: 
  Country: None (occurrence: None)
  Receive Date: 20100802
  Receipt Date: 20100723
  Transmission Date: 20110219
  Serious: Yes (Hospitalization, Other)
  Sender: FDA-Public Use
  Company Number: 20108958

PATIENT
  Sex: Male

DRUGS (1)
  1. LIORESAL [Suspect]
     Indication: MUSCLE SPASTICITY
     Dosage: MCG, DAILY, INTRATHECAL
     Route: 037

REACTIONS (7)
  - CULTURE WOUND POSITIVE [None]
  - INCISION SITE BLISTER [None]
  - INCISION SITE COMPLICATION [None]
  - INCISION SITE INFECTION [None]
  - MEDICAL DEVICE COMPLICATION [None]
  - PURULENCE [None]
  - STAPHYLOCOCCAL INFECTION [None]
